FAERS Safety Report 7561482-X (Version None)
Quarter: 2011Q2

REPORT INFORMATION
  Report Type: 
  Country: None (occurrence: None)
  Receive Date: 20110620
  Receipt Date: 20110620
  Transmission Date: 20111010
  Serious: No
  Sender: FDA-Public Use
  Company Number: None

PATIENT
  Age: 56 Year
  Sex: Female
  Weight: 52.1637 kg

DRUGS (2)
  1. ALPRAZOLAM [Suspect]
     Indication: PANIC ATTACK
     Dosage: 1 QID PO
     Route: 048
     Dates: start: 20080401, end: 20080509
  2. ALPRAZOLAM [Suspect]
     Indication: ASTHMA
     Dosage: 1 QID PO
     Route: 048
     Dates: start: 20080401, end: 20080509

REACTIONS (3)
  - NO THERAPEUTIC RESPONSE [None]
  - ASTHMA [None]
  - CONDITION AGGRAVATED [None]
